FAERS Safety Report 9687941 (Version 1)
Quarter: 2013Q4

REPORT INFORMATION
  Report Type: Spontaneous
  Country: US (occurrence: US)
  Receive Date: 20131114
  Receipt Date: 20131114
  Transmission Date: 20140711
  Serious: Yes (Hospitalization)
  Sender: FDA-Public Use
  Company Number: US-MYLANLABS-2013S1024788

PATIENT
  Age: 69 Year
  Sex: Female

DRUGS (3)
  1. AMLODIPINE [Suspect]
     Indication: OVERDOSE
     Route: 048
  2. ATENOLOL [Suspect]
     Indication: OVERDOSE
     Route: 048
  3. THIORIDAZINE [Suspect]
     Indication: OVERDOSE
     Route: 048

REACTIONS (2)
  - Shock [Recovered/Resolved]
  - Overdose [Recovered/Resolved]
